FAERS Safety Report 10589823 (Version 3)
Quarter: 2015Q1

REPORT INFORMATION
  Report Type: Report from Study
  Country: KR (occurrence: KR)
  Receive Date: 20141118
  Receipt Date: 20150225
  Transmission Date: 20150720
  Serious: Yes (Hospitalization)
  Sender: FDA-Public Use
  Company Number: KR-JNJFOC-20141107106

PATIENT
  Sex: Male
  Weight: 61 kg

DRUGS (14)
  1. FEROBA [Concomitant]
     Route: 065
     Dates: start: 20140602, end: 20140616
  2. SYNTHROID [Concomitant]
     Active Substance: LEVOTHYROXINE SODIUM
     Route: 065
     Dates: start: 20140602, end: 20140616
  3. CONCOR [Concomitant]
     Active Substance: BISOPROLOL FUMARATE
     Route: 065
     Dates: start: 20140217
  4. DIGOSIN [Concomitant]
     Active Substance: DIGOXIN
     Route: 065
     Dates: start: 20140602, end: 20140609
  5. ACERTIL [Concomitant]
     Route: 065
     Dates: start: 20140324, end: 20140427
  6. ACERTIL [Concomitant]
     Route: 065
     Dates: start: 20140428
  7. FLUDEX [Concomitant]
     Active Substance: INDAPAMIDE
     Route: 065
     Dates: start: 20141215
  8. XARELTO [Suspect]
     Active Substance: RIVAROXABAN
     Indication: THROMBOSIS PROPHYLAXIS
     Route: 048
     Dates: start: 20140325
  9. ASPIRIN. [Concomitant]
     Active Substance: ASPIRIN
     Route: 065
     Dates: start: 20130103, end: 20141214
  10. XARELTO [Suspect]
     Active Substance: RIVAROXABAN
     Indication: ATRIAL FIBRILLATION
     Route: 048
     Dates: start: 20140325
  11. XARELTO [Suspect]
     Active Substance: RIVAROXABAN
     Indication: CEREBROVASCULAR ACCIDENT PROPHYLAXIS
     Route: 048
     Dates: start: 20140325
  12. FLIVAS [Concomitant]
     Active Substance: NAFTOPIDIL
     Route: 065
     Dates: start: 20140602, end: 20140616
  13. TORSEMIDE. [Concomitant]
     Active Substance: TORSEMIDE
     Route: 065
     Dates: start: 20140217, end: 20141214
  14. FLUDEX [Concomitant]
     Active Substance: INDAPAMIDE
     Route: 065
     Dates: start: 20140428, end: 20140601

REACTIONS (9)
  - Hypophagia [Recovered/Resolved]
  - Palpitations [Recovered/Resolved]
  - Dyspnoea [Recovered/Resolved]
  - Anxiety [Recovered/Resolved]
  - Diarrhoea [Recovered/Resolved]
  - Dizziness [Recovered/Resolved]
  - Vertigo [Recovered/Resolved]
  - Dyspnoea [Recovered/Resolved]
  - Diarrhoea [Recovered/Resolved]

NARRATIVE: CASE EVENT DATE: 20140325
